FAERS Safety Report 20386048 (Version 2)
Quarter: 2022Q1

REPORT INFORMATION
  Report Type: Spontaneous
  Country: DE (occurrence: DE)
  Receive Date: 20220127
  Receipt Date: 20220208
  Transmission Date: 20220423
  Serious: Yes (Death, Hospitalization)
  Sender: FDA-Public Use
  Company Number: DE-TEVA-2022-DE-2001065

PATIENT
  Age: 63 Year
  Sex: Male

DRUGS (4)
  1. DEXAMETHASONE [Suspect]
     Active Substance: DEXAMETHASONE
     Indication: Thrombosis with thrombocytopenia syndrome
     Route: 065
  2. ARGATROBAN [Suspect]
     Active Substance: ARGATROBAN
     Indication: Thrombosis with thrombocytopenia syndrome
     Route: 065
  3. HUMAN IMMUNOGLOBULIN G [Suspect]
     Active Substance: HUMAN IMMUNOGLOBULIN G
     Indication: Thrombosis with thrombocytopenia syndrome
     Route: 042
  4. SALINE [Suspect]
     Active Substance: SODIUM CHLORIDE
     Indication: Thrombosis with thrombocytopenia syndrome
     Route: 065

REACTIONS (1)
  - Drug ineffective [Fatal]
